FAERS Safety Report 7913010-4 (Version None)
Quarter: 2011Q4

REPORT INFORMATION
  Report Type: 
  Country: None (occurrence: None)
  Receive Date: 20111114
  Receipt Date: 20111108
  Transmission Date: 20120403
  Serious: Yes (Other)
  Sender: FDA-Public Use
  Company Number: US-CEPHALON-2011005740

PATIENT
  Sex: Female
  Weight: 74 kg

DRUGS (10)
  1. SEPTRA [Concomitant]
  2. COMPAZINE [Concomitant]
  3. ACETAMINOPHEN [Concomitant]
  4. NEULASTA [Concomitant]
  5. BENADRYL [Concomitant]
  6. ALLOPURINOL [Concomitant]
  7. ZOVIRAX [Concomitant]
  8. PREDNISONE [Concomitant]
  9. TREANDA [Suspect]
     Indication: LYMPHOMA
     Route: 042
     Dates: start: 20110928
  10. RITUXAN [Concomitant]
     Dates: start: 20110928

REACTIONS (1)
  - BLOOD COUNT ABNORMAL [None]
